FAERS Safety Report 15883937 (Version 1)
Quarter: 2019Q1

REPORT INFORMATION
  Report Type: Other
  Country: GB (occurrence: US)
  Receive Date: 20190129
  Receipt Date: 20190129
  Transmission Date: 20190417
  Serious: Yes (Hospitalization, Other)
  Sender: FDA-Public Use
  Company Number: GB-CATALENT PHARMA SOLUTIONS-CAT-000237-2016

PATIENT
  Age: 58 Year
  Sex: Female

DRUGS (2)
  1. PROPRANOLOL [Suspect]
     Active Substance: PROPRANOLOL HYDROCHLORIDE
     Dosage: 20 MG, BID
     Route: 065
     Dates: end: 20141001
  2. PROPRANOLOL [Suspect]
     Active Substance: PROPRANOLOL HYDROCHLORIDE
     Indication: CEREBRAL HAEMANGIOMA
     Dosage: 20 MG, TID
     Route: 065
     Dates: start: 201304

REACTIONS (6)
  - Drug intolerance [Unknown]
  - Fall [Unknown]
  - Dyspnoea [Recovering/Resolving]
  - Product use in unapproved indication [Recovered/Resolved]
  - Joint dislocation [Unknown]
  - Exercise tolerance decreased [Recovering/Resolving]

NARRATIVE: CASE EVENT DATE: 201501
